FAERS Safety Report 21873679 (Version 1)
Quarter: 2023Q1

REPORT INFORMATION
  Report Type: Spontaneous
  Country: US (occurrence: None)
  Receive Date: 20230116
  Receipt Date: 20230116
  Transmission Date: 20230418
  Serious: Yes (Life-Threatening, Hospitalization)
  Sender: FDA-Public Use
  Company Number: None

PATIENT
  Age: 83 Year
  Sex: Male
  Weight: 96 kg

DRUGS (1)
  1. AMIODARONE [Suspect]
     Active Substance: AMIODARONE
     Indication: Atrial fibrillation
     Dosage: OTHER FREQUENCY : ONE TIME;?
     Route: 040
     Dates: start: 20230113

REACTIONS (4)
  - Anaphylactic reaction [None]
  - Unresponsive to stimuli [None]
  - Pulse absent [None]
  - Resuscitation [None]

NARRATIVE: CASE EVENT DATE: 20230113
